FAERS Safety Report 4720938-5 (Version None)
Quarter: 2005Q3

REPORT INFORMATION
  Report Type: 
  Country: None (occurrence: None)
  Receive Date: 20050720
  Receipt Date: 20050718
  Transmission Date: 20060218
  Serious: Yes (Other)
  Sender: FDA-Public Use
  Company Number: 028-20785-04070692

PATIENT
  Age: 37 Year
  Sex: Female

DRUGS (1)
  1. THALOMID [Suspect]
     Indication: MULTIPLE MYELOMA
     Dosage: 100 ,G. QHS, ORAL
     Route: 048

REACTIONS (1)
  - BLOOD HUMAN CHORIONIC GONADOTROPIN ABNORMAL [None]
